FAERS Safety Report 9166439 (Version 1)
Quarter: 2013Q1

REPORT INFORMATION
  Report Type: Spontaneous
  Country: US (occurrence: US)
  Receive Date: 20130315
  Receipt Date: 20130315
  Transmission Date: 20140127
  Serious: Yes (Other)
  Sender: FDA-Public Use
  Company Number: CHPA2013US004388

PATIENT
  Sex: Female

DRUGS (2)
  1. GAS-X [Suspect]
     Indication: FLATULENCE
     Dosage: 80 OR 160 MG , UNK
     Route: 048
     Dates: start: 20130206
  2. GAS-X [Suspect]
     Indication: ABDOMINAL DISTENSION

REACTIONS (5)
  - Ligament sprain [Recovering/Resolving]
  - Muscle strain [Recovering/Resolving]
  - Dyspepsia [Not Recovered/Not Resolved]
  - Off label use [Unknown]
  - Expired drug administered [Unknown]
